FAERS Safety Report 8117833-0 (Version None)
Quarter: 2012Q1

REPORT INFORMATION
  Report Type: 
  Country: None (occurrence: None)
  Receive Date: 20120131
  Receipt Date: 20120117
  Transmission Date: 20120608
  Serious: Yes (Hospitalization)
  Sender: FDA-Public Use
  Company Number: 2012ST000113

PATIENT
  Age: 41 Year
  Sex: Female

DRUGS (8)
  1. LAMICTAL [Suspect]
     Indication: EPILEPSY
     Dosage: 75 MG, QD, PO
     Route: 048
     Dates: start: 20110909, end: 20111015
  2. ESOMEPRAZOLE MAGNESIUM [Suspect]
     Indication: GASTRITIS
     Dosage: 20 MG, QD, PO
     Route: 048
     Dates: start: 20110712, end: 20111015
  3. CLONAZEPAM [Concomitant]
  4. LYRICA [Concomitant]
  5. PAROXETINE HYDROCHLORIDE [Concomitant]
  6. XYZAL [Concomitant]
  7. DAFALGAN CODEINE (PANADEINE CO) [Suspect]
     Dosage: 1 DF, QD, PO
     Route: 048
     Dates: start: 20110901, end: 20111015
  8. CARNITOR ORAL SOLUTION (LEVOCARNITINE ORAL SOLUTION) [Suspect]
     Indication: MYOPATHY
     Dosage: 100 MG, QD, PO
     Route: 048
     Dates: start: 20110902, end: 20111015

REACTIONS (9)
  - EPILEPSY [None]
  - TOXIC SKIN ERUPTION [None]
  - ROSEOLOVIRUS TEST POSITIVE [None]
  - HEPATIC FUNCTION ABNORMAL [None]
  - ASPARTATE AMINOTRANSFERASE INCREASED [None]
  - DRUG RASH WITH EOSINOPHILIA AND SYSTEMIC SYMPTOMS [None]
  - ALANINE AMINOTRANSFERASE INCREASED [None]
  - MYOPATHY [None]
  - UNEVALUABLE EVENT [None]
